FAERS Safety Report 8770277 (Version 1)
Quarter: 2012Q4

REPORT INFORMATION
  Report Type: 
  Country: US (occurrence: US)
  Receive Date: 20120906
  Receipt Date: 20120906
  Transmission Date: 20130627
  Serious: No
  Sender: FDA-Public Use
  Company Number: US-GLAXOSMITHKLINE-A0988537A

PATIENT
  Age: 11 Year
  Sex: Female

DRUGS (3)
  1. LAMICTAL [Suspect]
     Indication: GRAND MAL CONVULSION
     Dosage: 100MG Twice per day
     Route: 048
  2. LAMOTRIGINE [Suspect]
     Indication: GRAND MAL CONVULSION
     Dosage: 25MG Twice per day
     Route: 048
  3. PROPRANOLOL [Concomitant]
     Indication: TREMOR

REACTIONS (1)
  - Blood aluminium increased [Unknown]
